FAERS Safety Report 22087212 (Version 1)
Quarter: 2023Q1

REPORT INFORMATION
  Report Type: Report from Study
  Country: FR (occurrence: None)
  Receive Date: 20230313
  Receipt Date: 20230313
  Transmission Date: 20230418
  Serious: Yes (Hospitalization)
  Sender: FDA-Public Use
  Company Number: FR-ROCHE-2993514

PATIENT
  Age: 70 Year
  Sex: Female
  Weight: 78 kg

DRUGS (8)
  1. ATEZOLIZUMAB [Suspect]
     Active Substance: ATEZOLIZUMAB
     Indication: Triple negative breast cancer
     Dosage: ON 21/DEC/2021,SHE RECEIVED MOST RECENT DOSE OF ATEZOLIZUMAB 840 MG PRIOR TO AE AND SAE ONSET.
     Route: 041
     Dates: start: 20210810
  2. PACLITAXEL [Suspect]
     Active Substance: PACLITAXEL
     Indication: Triple negative breast cancer
     Dosage: ON 26/OCT/2021,SHE RECEIVED MOST RECENT DOSE OF PACLITAXEL 144 MG PRIOR TO AE AND SAE ONSET.?DATE OF
     Route: 042
     Dates: start: 20210810
  3. EPIRUBICIN [Suspect]
     Active Substance: EPIRUBICIN
     Indication: Triple negative breast cancer
     Dosage: ON 21/DEC/2021, SHE RECEIVED MOST RECENT DOSE OF EPIRUBICIN 150 MG PRIOR TO AE AND SAE ONSET.
     Route: 042
     Dates: start: 20211109
  4. CYCLOPHOSPHAMIDE [Suspect]
     Active Substance: CYCLOPHOSPHAMIDE
     Indication: Triple negative breast cancer
     Dosage: ON 21/DEC/2021,SHE RECEIVED MOST RECENT DOSE OF CYCLOPHOSPHAMIDE 1000 MG PRIOR TO AE AND SAE ONSET
     Route: 042
     Dates: start: 20211109
  5. PEGFILGRASTIM [Suspect]
     Active Substance: PEGFILGRASTIM
     Indication: Triple negative breast cancer
     Route: 058
     Dates: start: 20211111, end: 20211111
  6. PEGFILGRASTIM [Suspect]
     Active Substance: PEGFILGRASTIM
     Route: 058
     Dates: start: 20211125, end: 20211125
  7. PEGFILGRASTIM [Suspect]
     Active Substance: PEGFILGRASTIM
     Route: 058
     Dates: start: 20211209, end: 20211209
  8. PEGFILGRASTIM [Suspect]
     Active Substance: PEGFILGRASTIM
     Dosage: ON 23/DEC/2021, RECEIVED MOST RECENT DOSE.
     Route: 058
     Dates: start: 20211223, end: 20211223

REACTIONS (3)
  - Febrile neutropenia [Recovered/Resolved]
  - White blood cell count decreased [Recovered/Resolved]
  - Lymphopenia [Not Recovered/Not Resolved]

NARRATIVE: CASE EVENT DATE: 20211227
